FAERS Safety Report 6928807-7 (Version None)
Quarter: 2010Q3

REPORT INFORMATION
  Report Type: 
  Country: None (occurrence: None)
  Receive Date: 20100806
  Receipt Date: 20090707
  Transmission Date: 20110219
  Serious: No
  Sender: FDA-Public Use
  Company Number: 2009-00368

PATIENT
  Age: 68 Year
  Sex: Female
  Weight: 79.8331 kg

DRUGS (5)
  1. ZICAM COLD REMEDY GEL SWABS [Suspect]
     Dosage: 3 DAYS; 2007 AFTER 3 DAYS
  2. VENTOLIN [Concomitant]
  3. MULTI-VITAMIN [Concomitant]
  4. CALCIUM W/VITAMIN D [Concomitant]
  5. FISH OIL [Concomitant]

REACTIONS (1)
  - ANOSMIA [None]
